FAERS Safety Report 18214805 (Version 1)
Quarter: 2020Q3

REPORT INFORMATION
  Report Type: Spontaneous
  Country: FR (occurrence: FR)
  Receive Date: 20200831
  Receipt Date: 20200831
  Transmission Date: 20201103
  Serious: Yes (Other)
  Sender: FDA-Public Use
  Company Number: FR-MYLANLABS-2020M1074399

PATIENT
  Age: 77 Year
  Sex: Female
  Weight: 74 kg

DRUGS (11)
  1. UVEDOSE [Concomitant]
     Active Substance: CHOLECALCIFEROL
     Dosage: 1 DOSAGE FORM, 15 DAY
     Route: 048
     Dates: start: 20200620
  2. ZYRTEC [Concomitant]
     Active Substance: CETIRIZINE HYDROCHLORIDE
     Dosage: 10 MILLIGRAM, QD
     Route: 048
     Dates: start: 20200616
  3. SEROPLEX [Concomitant]
     Active Substance: ESCITALOPRAM OXALATE
     Indication: PRODUCT USED FOR UNKNOWN INDICATION
     Dosage: LE MATIN
     Route: 048
  4. SPECIAFOLDINE [Concomitant]
     Active Substance: FOLIC ACID
     Dosage: 15 MILLIGRAM, QD
     Route: 048
     Dates: start: 20200619
  5. XANAX [Concomitant]
     Active Substance: ALPRAZOLAM
     Indication: PRODUCT USED FOR UNKNOWN INDICATION
     Dosage: SCORED TABLET
     Route: 048
  6. SERESTA [Concomitant]
     Active Substance: OXAZEPAM
     Dosage: 1.5 DOSAGE FORM, QD
     Route: 048
     Dates: start: 20200715
  7. LANZOR [Concomitant]
     Active Substance: LANSOPRAZOLE
     Dosage: GASTRO?RESISTANT MICROGRANULES HARD CAPSULES
     Route: 048
     Dates: start: 20200629
  8. LOVENOX [Concomitant]
     Active Substance: ENOXAPARIN SODIUM
     Indication: THROMBOSIS PROPHYLAXIS
     Dosage: 4000 IU ANTI?XA / 0.4 ML, SOLUTION FOR INJECTION IN CARTRIDGE
     Route: 058
     Dates: start: 20200615, end: 20200715
  9. SYMBICORT [Concomitant]
     Active Substance: BUDESONIDE\FORMOTEROL FUMARATE DIHYDRATE
     Indication: ASTHMA
     Dosage: 1 INHALATION MATIN ET SOIR, 400/12 MICROGRAMS / DOSE
     Route: 055
  10. VANCOMYCINE MYLAN 500 MG POUDRE POUR SOLUTION POUR PERFUSION [Suspect]
     Active Substance: VANCOMYCIN
     Indication: STREPTOCOCCAL SEPSIS
     Dosage: 2250 MILLIGRAM, QD
     Route: 041
     Dates: start: 20200715, end: 20200720
  11. OXYNORM [Concomitant]
     Active Substance: OXYCODONE HYDROCHLORIDE
     Dosage: 1/JOUR SI BESOIN
     Route: 048
     Dates: start: 20200708

REACTIONS (2)
  - Antibiotic level above therapeutic [Recovered/Resolved]
  - Acute kidney injury [Recovered/Resolved]

NARRATIVE: CASE EVENT DATE: 20200720
